FAERS Safety Report 5138587-6 (Version None)
Quarter: 2006Q4

REPORT INFORMATION
  Report Type: 
  Country: None (occurrence: None)
  Receive Date: 20061024
  Receipt Date: 20061011
  Transmission Date: 20070319
  Serious: Yes (Other)
  Sender: FDA-Public Use
  Company Number: 230658

PATIENT
  Age: 8 Year
  Sex: Male

DRUGS (1)
  1. NUTROPIN [Suspect]
     Indication: GROWTH HORMONE DEFICIENCY
     Dosage: 0.7 MG, QHS, SUBCUTANEOUS
     Route: 058
     Dates: start: 20060125

REACTIONS (2)
  - MEDULLOBLASTOMA [None]
  - NEOPLASM RECURRENCE [None]
